FAERS Safety Report 6729726-1 (Version None)
Quarter: 2010Q2

REPORT INFORMATION
  Report Type: 
  Country: None (occurrence: None)
  Receive Date: 20100518
  Receipt Date: 20100518
  Transmission Date: 20101027
  Serious: Yes (Other)
  Sender: FDA-Public Use
  Company Number: None

PATIENT
  Age: 2 Year
  Sex: Male
  Weight: 11.7935 kg

DRUGS (2)
  1. CONCENTRATED TYLENOL INFANT DROPS [Suspect]
     Indication: PYREXIA
     Dosage: 1.6 4 HOURS PO
     Route: 048
     Dates: start: 20080101, end: 20100430
  2. CONCENTRATED TYLENOL INFANT DROPS [Suspect]
     Indication: VIRAL TEST POSITIVE
     Dosage: 1.6 4 HOURS PO
     Route: 048
     Dates: start: 20080101, end: 20100430

REACTIONS (3)
  - BLOOD LEAD INCREASED [None]
  - PRODUCT CONTAMINATION PHYSICAL [None]
  - PRODUCT QUALITY ISSUE [None]
